FAERS Safety Report 10853127 (Version 1)
Quarter: 2015Q1

REPORT INFORMATION
  Report Type: Spontaneous
  Country: US (occurrence: None)
  Receive Date: 20150218
  Receipt Date: 20150218
  Transmission Date: 20150721
  Serious: Yes (Other)
  Sender: FDA-Public Use
  Company Number: None

PATIENT
  Sex: Male

DRUGS (8)
  1. AFINITOR [Suspect]
     Active Substance: EVEROLIMUS
     Indication: RENAL CANCER
     Route: 048
     Dates: start: 20140522, end: 201502
  2. LORAZEPAM. [Concomitant]
     Active Substance: LORAZEPAM
  3. IINLYTA [Concomitant]
  4. VANCOMYCIN [Concomitant]
     Active Substance: VANCOMYCIN
  5. HYDROMORPHONE [Concomitant]
     Active Substance: HYDROMORPHONE
  6. OXYCODONE [Concomitant]
     Active Substance: OXYCODONE
  7. FENTANYL. [Concomitant]
     Active Substance: FENTANYL
  8. AFINITOR [Concomitant]
     Active Substance: EVEROLIMUS

REACTIONS (3)
  - Nausea [None]
  - Fatigue [None]
  - Abdominal pain upper [None]
